FAERS Safety Report 7529060-6 (Version None)
Quarter: 2011Q2

REPORT INFORMATION
  Report Type: 
  Country: None (occurrence: None)
  Receive Date: 20110520
  Receipt Date: 20110321
  Transmission Date: 20111010
  Serious: No
  Sender: FDA-Public Use
  Company Number: 029757

PATIENT

DRUGS (2)
  1. LACOSAMIDE [Suspect]
  2. DEPAKOTE [Suspect]

REACTIONS (1)
  - AMMONIA INCREASED [None]
